FAERS Safety Report 5766899-1 (Version None)
Quarter: 2008Q2

REPORT INFORMATION
  Report Type: 
  Country: None (occurrence: None)
  Receive Date: 20080609
  Receipt Date: 20080602
  Transmission Date: 20081010
  Serious: Yes (Death, Hospitalization, Disabling)
  Sender: FDA-Public Use
  Company Number: 2008SP007828

PATIENT
  Age: 65 Year
  Sex: Male

DRUGS (4)
  1. TEMODAL [Suspect]
     Indication: GLIOBLASTOMA
     Dosage: 300 MG; QD; PO; 140 MG; QD; PO
     Route: 048
     Dates: start: 20071212, end: 20071216
  2. TEMODAL [Suspect]
     Indication: GLIOBLASTOMA
     Dosage: 300 MG; QD; PO; 140 MG; QD; PO
     Route: 048
     Dates: start: 20080102, end: 20080213
  3. ONDANSETRON (CON.) [Concomitant]
  4. DOMPERIDONE (CON.) [Concomitant]

REACTIONS (3)
  - APLASTIC ANAEMIA [None]
  - BACTERIAL SEPSIS [None]
  - PANCYTOPENIA [None]
